FAERS Safety Report 17533126 (Version 10)
Quarter: 2022Q1

REPORT INFORMATION
  Report Type: Report from Study
  Country: JP (occurrence: JP)
  Receive Date: 20200312
  Receipt Date: 20220324
  Transmission Date: 20220423
  Serious: Yes (Hospitalization)
  Sender: FDA-Public Use
  Company Number: JP-DAIICHI SANKYO (CHINA) HOLDINGS CO., LTD.-DSJ-2019-121520

PATIENT
  Age: 71 Year
  Sex: Female
  Weight: 72 kg

DRUGS (26)
  1. TRASTUZUMAB DERUXTECAN [Suspect]
     Active Substance: TRASTUZUMAB DERUXTECAN
     Indication: HER2 positive breast cancer
     Dosage: 5.4 MG/KG, ONCE EVERY 3 WK
     Route: 041
     Dates: start: 20190404, end: 20190606
  2. TRASTUZUMAB DERUXTECAN [Suspect]
     Active Substance: TRASTUZUMAB DERUXTECAN
     Dosage: 4.4 MG/KG, ONCE EVERY 3 WK
     Route: 041
     Dates: start: 20190718, end: 20190829
  3. TRASTUZUMAB DERUXTECAN [Suspect]
     Active Substance: TRASTUZUMAB DERUXTECAN
     Dosage: 4.4 MG/KG, ONCE EVERY 3 WK
     Route: 041
     Dates: start: 20191001, end: 20191001
  4. TRASTUZUMAB DERUXTECAN [Suspect]
     Active Substance: TRASTUZUMAB DERUXTECAN
     Dosage: 4.4 MG/KG, ONCE EVERY 3 WK
     Route: 041
     Dates: start: 20191030, end: 20191030
  5. TRASTUZUMAB DERUXTECAN [Suspect]
     Active Substance: TRASTUZUMAB DERUXTECAN
     Dosage: 4.4 MG/KG, ONCE EVERY 3 WK
     Route: 041
     Dates: start: 20191128, end: 20200220
  6. TRASTUZUMAB DERUXTECAN [Suspect]
     Active Substance: TRASTUZUMAB DERUXTECAN
     Dosage: 3.2 MG/KG, ONCE EVERY 3 WK
     Route: 041
     Dates: start: 20200312, end: 20200423
  7. TRASTUZUMAB DERUXTECAN [Suspect]
     Active Substance: TRASTUZUMAB DERUXTECAN
     Dosage: 3.2 MG/KG, ONCE EVERY 3 WK
     Route: 041
     Dates: start: 20200526, end: 20200526
  8. BETAMETHASONE VALERATE [Concomitant]
     Active Substance: BETAMETHASONE VALERATE
     Indication: Eczema
     Dosage: PROPER QUANTITIY, AS NEEDED
     Route: 061
     Dates: start: 20190411, end: 20190606
  9. FESOTERODINE FUMARATE [Concomitant]
     Active Substance: FESOTERODINE FUMARATE
     Indication: Hypertonic bladder
     Dosage: 4 MG, QD
     Route: 048
     Dates: start: 20171111, end: 201905
  10. LOXOPROFEN SODIUM DIHYDRATE [Concomitant]
     Active Substance: LOXOPROFEN SODIUM DIHYDRATE
     Indication: Cancer pain
     Dosage: 60 MG, AS NEEDED
     Route: 048
     Dates: start: 2016
  11. MAGNESIUM OXIDE [Concomitant]
     Active Substance: MAGNESIUM OXIDE
     Indication: Constipation
     Dosage: 330 MG, AS NEEDED
     Route: 048
     Dates: start: 2016
  12. METRONIDAZOLE [Concomitant]
     Active Substance: METRONIDAZOLE
     Indication: Prophylaxis
     Dosage: PROPER QUANTITIY, QD
     Route: 061
     Dates: start: 20190129, end: 201903
  13. SODIUM HYALURONATE [Concomitant]
     Active Substance: HYALURONATE SODIUM
     Indication: Dry eye
     Dosage: 1 DROP, 5-6 TIMES PER DAY
     Route: 031
     Dates: start: 20190401
  14. REBAMIPIDE [Concomitant]
     Active Substance: REBAMIPIDE
     Indication: Mucosal disorder
     Dosage: 100 MG, AS NEEDED
     Route: 048
     Dates: start: 2016
  15. REBAMIPIDE [Concomitant]
     Active Substance: REBAMIPIDE
     Indication: Prophylaxis
  16. SODIUM FERROUS CITRATE [Concomitant]
     Active Substance: SODIUM FERROUS CITRATE
     Indication: Anaemia
     Dosage: 100 MG, QD
     Route: 048
     Dates: start: 20190313, end: 20190717
  17. SODIUM FERROUS CITRATE [Concomitant]
     Active Substance: SODIUM FERROUS CITRATE
     Dosage: 100 MG, QD
     Route: 048
     Dates: start: 20190622, end: 20190717
  18. V ROHTO [Concomitant]
     Indication: Conjunctival disorder
     Dosage: 1 DROP, 5-6 TIMES PER DAY
     Route: 031
     Dates: start: 20190321, end: 20190401
  19. V ROHTO [Concomitant]
     Indication: Prophylaxis
  20. WHITE PETROLATUM [Concomitant]
     Active Substance: PETROLATUM
     Indication: Prophylaxis
     Dosage: PROPER QUANTITIY, QD
     Route: 061
     Dates: start: 20190312
  21. BORRAGINOL A                       /01370101/ [Concomitant]
     Indication: Haemorrhoids
     Dosage: 1 DF, AS NEEDED
     Route: 054
     Dates: start: 20190411, end: 20190411
  22. ENSURE                             /07499801/ [Concomitant]
     Indication: Hypoalbuminaemia
     Dosage: 0.25 L, QD
     Route: 048
     Dates: start: 20190418, end: 201905
  23. HYDROXYZINE HYDROCHLORIDE [Concomitant]
     Active Substance: HYDROXYZINE HYDROCHLORIDE
     Indication: Anaemia
     Dosage: 25 MG, AS NEEDED
     Route: 042
     Dates: start: 20190607, end: 20190609
  24. LEVOFLOXACIN HEMIHYDRATE [Concomitant]
     Active Substance: LEVOFLOXACIN
     Indication: Pyelonephritis
     Dosage: 500 MG, AS NEEDED
     Route: 048
     Dates: start: 20190607, end: 20190613
  25. METOCLOPRAMIDE HYDROCHLORIDE [Concomitant]
     Active Substance: METOCLOPRAMIDE HYDROCHLORIDE
     Indication: Anaemia
     Dosage: 10 MG, AS NEEDED
     Route: 042
     Dates: start: 20190607, end: 20190609
  26. IOPAMIDOL [Concomitant]
     Active Substance: IOPAMIDOL
     Indication: Scan with contrast
     Dosage: 0.1 L, PER 6 WEEKS
     Route: 042
     Dates: start: 20190328, end: 20200602

REACTIONS (1)
  - Cystitis haemorrhagic [Recovered/Resolved]

NARRATIVE: CASE EVENT DATE: 20190607
